FAERS Safety Report 12442620 (Version 1)
Quarter: 2016Q2

REPORT INFORMATION
  Report Type: Spontaneous
  Country: US (occurrence: None)
  Receive Date: 20160606
  Receipt Date: 20160606
  Transmission Date: 20160815
  Serious: Yes (Disabling, Other)
  Sender: FDA-Public Use
  Company Number: None

PATIENT
  Age: 55 Year
  Sex: Female
  Weight: 74.84 kg

DRUGS (4)
  1. LEFLUNOMIDE TABLETS, 20 MG [Suspect]
     Active Substance: LEFLUNOMIDE
     Indication: PSORIATIC ARTHROPATHY
     Route: 048
     Dates: start: 20151120, end: 20160510
  2. RESTASIS [Concomitant]
     Active Substance: CYCLOSPORINE
  3. NAPROXEN. [Concomitant]
     Active Substance: NAPROXEN
  4. BYSTOLIC [Concomitant]
     Active Substance: NEBIVOLOL HYDROCHLORIDE

REACTIONS (28)
  - Abdominal distension [None]
  - Stomatitis [None]
  - Muscle spasms [None]
  - Pain in extremity [None]
  - Paraesthesia [None]
  - Arthralgia [None]
  - Vision blurred [None]
  - Pyrexia [None]
  - Cough [None]
  - Alopecia [None]
  - Dizziness [None]
  - Chills [None]
  - Balance disorder [None]
  - Fatigue [None]
  - Back pain [None]
  - Psoriasis [None]
  - Bursitis [None]
  - Joint swelling [None]
  - Micturition urgency [None]
  - Fall [None]
  - Peripheral swelling [None]
  - Urinary tract infection [None]
  - Acne [None]
  - Blood pressure increased [None]
  - Impaired healing [None]
  - Nausea [None]
  - Pruritus [None]
  - Sinusitis [None]

NARRATIVE: CASE EVENT DATE: 20160508
